FAERS Safety Report 6173169-9 (Version None)
Quarter: 2009Q2

REPORT INFORMATION
  Report Type: 
  Country: None (occurrence: None)
  Receive Date: 20090430
  Receipt Date: 20090420
  Transmission Date: 20091009
  Serious: Yes (Hospitalization)
  Sender: FDA-Public Use
  Company Number: JP-PFIZER INC-2009186986

PATIENT

DRUGS (11)
  1. SUNITINIB MALATE [Suspect]
     Indication: BREAST CANCER
     Dosage: 37.5 MG, 1X/DAY
     Route: 048
     Dates: start: 20090113, end: 20090218
  2. SUNITINIB MALATE [Suspect]
     Dosage: 37.5 MG, 1X/DAY
     Dates: start: 20090303, end: 20090318
  3. SUNITINIB MALATE [Suspect]
     Dosage: 37.5 MG, 1X/DAY
     Dates: start: 20090327
  4. *CAPECITABINE [Suspect]
     Indication: BREAST CANCER
     Dosage: 1600 MG, 2X/DAY
     Route: 048
     Dates: start: 20090113, end: 20090126
  5. *CAPECITABINE [Suspect]
     Dosage: 1600 MG, 2X/DAY
     Dates: start: 20090212
  6. NORVASC [Suspect]
     Indication: HYPERTENSION
     Dosage: 2.5 MG, 1X/DAY
     Route: 048
     Dates: start: 20090316
  7. DEPAS [Suspect]
     Indication: ANXIETY DISORDER
     Dosage: 0.5 MG, AS NEEDED
     Route: 048
     Dates: start: 20080514
  8. UREA [Concomitant]
     Dosage: UNK
     Route: 061
     Dates: start: 20090114
  9. DIPHENHYDRAMINE HCL [Concomitant]
     Dosage: UNK
     Route: 061
     Dates: start: 20090123
  10. NAUZELIN [Concomitant]
     Dosage: UNK
     Route: 048
     Dates: start: 20090122
  11. PARIET [Concomitant]
     Dosage: UNK
     Route: 048
     Dates: start: 20090303

REACTIONS (4)
  - DEHYDRATION [None]
  - DIARRHOEA [None]
  - HYPERTENSION [None]
  - VOMITING [None]
